FAERS Safety Report 9752131 (Version 1)
Quarter: 2013Q4

REPORT INFORMATION
  Report Type: Spontaneous
  Country: US (occurrence: None)
  Receive Date: 20131212
  Receipt Date: 20131212
  Transmission Date: 20140711
  Serious: Yes (Death)
  Sender: FDA-Public Use
  Company Number: None

PATIENT
  Sex: Female

DRUGS (1)
  1. EXJADE 250MG NOVARTIS [Suspect]
     Indication: PEARSON^S SYNDROME
     Route: 048
     Dates: start: 20131010, end: 20131208

REACTIONS (1)
  - Hepatic failure [None]
